FAERS Safety Report 24818515 (Version 1)
Quarter: 2025Q1

REPORT INFORMATION
  Report Type: Report from Study
  Country: US (occurrence: US)
  Receive Date: 20250108
  Receipt Date: 20250108
  Transmission Date: 20250409
  Serious: Yes (Hospitalization, Other)
  Sender: BAYER HEALTHCARE PHARMACEUTICALS INC.
  Company Number: US-BAYER-2024A147394

PATIENT
  Age: 63 Year
  Sex: Female
  Weight: 65.76 kg

DRUGS (14)
  1. ADEMPAS [Suspect]
     Active Substance: RIOCIGUAT
     Indication: Pulmonary arterial hypertension
     Dosage: 2.5 MG, TID
     Dates: start: 20181228
  2. ADEMPAS [Suspect]
     Active Substance: RIOCIGUAT
     Indication: Pulmonary arterial hypertension
     Dosage: 2.5 MG, TID
     Route: 048
     Dates: start: 20230420
  3. ADEMPAS [Suspect]
     Active Substance: RIOCIGUAT
     Indication: Pulmonary arterial hypertension
     Dates: start: 2024
  4. TYLENOL [Concomitant]
     Active Substance: ACETAMINOPHEN
  5. ADVIL [Concomitant]
     Active Substance: IBUPROFEN
  6. SPIRONOLACTONE [Concomitant]
     Active Substance: SPIRONOLACTONE
  7. SODIUM CHLORIDE [Concomitant]
     Active Substance: SODIUM CHLORIDE
  8. OPSUMIT [Concomitant]
     Active Substance: MACITENTAN
  9. LASIX [Concomitant]
     Active Substance: FUROSEMIDE
  10. OXYGEN [Concomitant]
     Active Substance: OXYGEN
  11. ORENITRAM [Concomitant]
     Active Substance: TREPROSTINIL
     Indication: Pulmonary arterial hypertension
     Dosage: 1 MG, Q8HR
     Route: 048
     Dates: start: 20240723
  12. ORENITRAM [Concomitant]
     Active Substance: TREPROSTINIL
     Indication: Pulmonary arterial hypertension
     Dosage: 0.25 MG, Q8HR
     Route: 048
  13. ORENITRAM [Concomitant]
     Active Substance: TREPROSTINIL
     Indication: Pulmonary arterial hypertension
     Dosage: 0.125 MG, Q8HR
     Route: 048
  14. REMODULIN [Concomitant]
     Active Substance: TREPROSTINIL
     Route: 042
     Dates: start: 20241101

REACTIONS (11)
  - Asthenia [None]
  - Hypophagia [None]
  - Feeling abnormal [None]
  - Food refusal [None]
  - Somnolence [None]
  - Biliary obstruction [None]
  - Pancreatic carcinoma [Not Recovered/Not Resolved]
  - General physical health deterioration [None]
  - Loss of consciousness [None]
  - Blood pressure abnormal [None]
  - Malaise [None]

NARRATIVE: CASE EVENT DATE: 20240101
